FAERS Safety Report 17737030 (Version 2)
Quarter: 2020Q2

REPORT INFORMATION
  Report Type: Spontaneous
  Country: JP (occurrence: JP)
  Receive Date: 20200502
  Receipt Date: 20200620
  Transmission Date: 20200714
  Serious: Yes (Life-Threatening, Hospitalization, Other)
  Sender: FDA-Public Use
  Company Number: JP-AUROBINDO-AUR-APL-2020-022141

PATIENT
  Age: 58 Year
  Sex: Male

DRUGS (1)
  1. PRALATREXATE INJECTION [Suspect]
     Active Substance: PRALATREXATE
     Indication: LYMPHOMA
     Dosage: 30 MG/M2, DAILY
     Route: 042
     Dates: start: 20200413, end: 20200413

REACTIONS (2)
  - Cardiac failure [Recovered/Resolved]
  - Acute kidney injury [Recovered/Resolved]

NARRATIVE: CASE EVENT DATE: 20200414
